FAERS Safety Report 17798477 (Version 1)
Quarter: 2020Q2

REPORT INFORMATION
  Report Type: Spontaneous
  Country: DE (occurrence: DE)
  Receive Date: 20200518
  Receipt Date: 20200518
  Transmission Date: 20200714
  Serious: Yes (Life-Threatening, Hospitalization, Other)
  Sender: FDA-Public Use
  Company Number: DE-TEVA-2020-DE-1235456

PATIENT
  Age: 52 Year
  Sex: Female
  Weight: 90 kg

DRUGS (11)
  1. COTRIM [Suspect]
     Active Substance: SULFAMETHOXAZOLE\TRIMETHOPRIM
     Indication: PROPHYLAXIS
     Dosage: 2880 MILLIGRAM DAILY;  EVERY WEEKS 3 SEPARATED DOSES
     Route: 048
     Dates: start: 201905, end: 201911
  2. VALGANCICLOVIR. [Suspect]
     Active Substance: VALGANCICLOVIR
     Indication: ANTIVIRAL PROPHYLAXIS
     Dosage: 450 MILLIGRAM
     Route: 048
     Dates: start: 201905, end: 201908
  3. CLOPIDOGREL [Suspect]
     Active Substance: CLOPIDOGREL BISULFATE
     Indication: STENT PLACEMENT
     Dosage: 100 MILLIGRAM
     Route: 048
     Dates: start: 20181105, end: 20200122
  4. CYMEVEN [Concomitant]
     Active Substance: GANCICLOVIR
     Indication: ANTIVIRAL PROPHYLAXIS
     Route: 048
     Dates: start: 201912
  5. MARCUMAR [Concomitant]
     Active Substance: PHENPROCOUMON
     Indication: FACTOR V LEIDEN MUTATION
     Dosage: ACCORDING TO INR
     Route: 048
     Dates: start: 201606
  6. BISOPROLOL [Concomitant]
     Active Substance: BISOPROLOL
     Indication: TACHYCARDIA
     Dosage: 1.25 MILLIGRAM
     Route: 048
     Dates: start: 20190529
  7. CELLCEPT [Suspect]
     Active Substance: MYCOPHENOLATE MOFETIL\MYCOPHENOLATE MOFETIL HYDROCHLORIDE
     Indication: RENAL TRANSPLANT
     Dosage: 500 MILLIGRAM
     Route: 048
     Dates: start: 201905
  8. PARACETAMOL [Concomitant]
     Active Substance: ACETAMINOPHEN
     Indication: PAIN
     Dosage: IF NECESSARY?UNIT DOSE :500 MILLIGRAM
     Route: 048
     Dates: start: 201907
  9. PROGRAF [Concomitant]
     Active Substance: TACROLIMUS
     Indication: RENAL TRANSPLANT
     Dosage: DOSAGE ACCORDING TO TALSPIEGEL
     Route: 048
     Dates: start: 201905
  10. PREDNISOLON [Concomitant]
     Active Substance: PREDNISOLONE
     Indication: RENAL TRANSPLANT
     Dosage: 5 MILLIGRAM
     Route: 048
     Dates: start: 201905
  11. NOVAMINSULFON [Concomitant]
     Active Substance: METAMIZOLE
     Indication: PAIN
     Dosage: IF NECESSARY ...?UNIT DOSE:500 MILLIGRAM
     Route: 048
     Dates: end: 201906

REACTIONS (2)
  - Agranulocytosis [Recovered/Resolved]
  - Leukopenia [Recovered/Resolved]

NARRATIVE: CASE EVENT DATE: 20190729
